FAERS Safety Report 5670827-7 (Version None)
Quarter: 2008Q2

REPORT INFORMATION
  Report Type: 
  Country: None (occurrence: None)
  Receive Date: 20080305
  Receipt Date: 20071002
  Transmission Date: 20081010
  Serious: Yes (Other)
  Sender: FDA-Public Use
  Company Number: BDI-010275

PATIENT
  Age: 62 Year
  Sex: Female

DRUGS (2)
  1. ISOVUE-370 [Suspect]
     Indication: COMPUTERISED TOMOGRAM ABDOMEN
     Dosage: 80ML ONCE
     Dates: start: 20070927, end: 20070927
  2. ISOVUE-370 [Suspect]
     Indication: LIVER DISORDER
     Dosage: 80ML ONCE
     Dates: start: 20070927, end: 20070927

REACTIONS (1)
  - ANAPHYLACTOID REACTION [None]
